FAERS Safety Report 4910741-5 (Version None)
Quarter: 2006Q1

REPORT INFORMATION
  Report Type: 
  Country: None (occurrence: None)
  Receive Date: 20060209
  Receipt Date: 20060209
  Transmission Date: 20060701
  Serious: Yes (Hospitalization)
  Sender: FDA-Public Use
  Company Number: None

PATIENT
  Sex: Female
  Weight: 97 kg

DRUGS (3)
  1. FLUOROURACIL [Suspect]
     Indication: COLON CANCER
     Dosage: 5570 MG
     Dates: end: 20060124
  2. LEUCOVORIN CALCIUM [Suspect]
     Dosage: 800 MG
     Dates: start: 20060124
  3. ELOXATIN [Suspect]
     Dosage: 170 MG
     Dates: end: 20060124

REACTIONS (2)
  - LUNG INFILTRATION [None]
  - PULMONARY EMBOLISM [None]
